FAERS Safety Report 19575523 (Version 2)
Quarter: 2021Q3

REPORT INFORMATION
  Report Type: Spontaneous
  Country: JP (occurrence: JP)
  Receive Date: 20210719
  Receipt Date: 20210913
  Transmission Date: 20211014
  Serious: Yes (Other)
  Sender: FDA-Public Use
  Company Number: NVSJ2021JP000850

PATIENT
  Age: 81 Year
  Sex: Male
  Weight: 62 kg

DRUGS (4)
  1. BEOVU [Suspect]
     Active Substance: BROLUCIZUMAB-DBLL
     Dosage: 6 MG
     Route: 031
     Dates: start: 20201124, end: 20201124
  2. BEOVU [Suspect]
     Active Substance: BROLUCIZUMAB-DBLL
     Dosage: 6 MG
     Route: 031
     Dates: start: 20201027, end: 20201027
  3. VEGAMOX [Concomitant]
     Active Substance: MOXIFLOXACIN HYDROCHLORIDE
     Indication: PRODUCT USED FOR UNKNOWN INDICATION
     Dosage: UNK
     Route: 047
  4. BEOVU [Suspect]
     Active Substance: BROLUCIZUMAB-DBLL
     Indication: NEOVASCULAR AGE-RELATED MACULAR DEGENERATION
     Dosage: 6 MG
     Route: 031
     Dates: start: 20200928, end: 20200928

REACTIONS (14)
  - Blindness transient [Recovered/Resolved]
  - Disease progression [Unknown]
  - Vitreous floaters [Unknown]
  - Subretinal fluid [Unknown]
  - Neovascular age-related macular degeneration [Unknown]
  - Vitreous opacities [Recovered/Resolved]
  - Vision blurred [Recovering/Resolving]
  - Anterior chamber cell [Recovering/Resolving]
  - Eye inflammation [Unknown]
  - Vitritis [Unknown]
  - Detachment of retinal pigment epithelium [Unknown]
  - Conjunctival hyperaemia [Unknown]
  - Keratic precipitates [Recovered/Resolved]
  - Iritis [Unknown]

NARRATIVE: CASE EVENT DATE: 20201125
